FAERS Safety Report 16143952 (Version 3)
Quarter: 2020Q3

REPORT INFORMATION
  Report Type: Spontaneous
  Country: CA (occurrence: CA)
  Receive Date: 20190401
  Receipt Date: 20200930
  Transmission Date: 20201102
  Serious: Yes (Other)
  Sender: FDA-Public Use
  Company Number: CA-PFIZER INC-2018499810

PATIENT
  Age: 74 Year
  Sex: Female

DRUGS (14)
  1. CANNABIDIOL [Concomitant]
     Active Substance: CANNABIDIOL
     Indication: PAIN MANAGEMENT
     Dosage: UNK
  2. NAPROXEN. [Concomitant]
     Active Substance: NAPROXEN
     Indication: PAIN MANAGEMENT
     Dosage: UNK
  3. METAMUCIL THERAPY FOR REGULARITY [Concomitant]
     Active Substance: PSYLLIUM HUSK
     Dosage: UNK
  4. GLUCOSAMINE [Concomitant]
     Active Substance: GLUCOSAMINE
     Dosage: 62.5MG?50MG?25MG?100MCG
     Route: 048
  5. SYNTHROID [Concomitant]
     Active Substance: LEVOTHYROXINE SODIUM
     Dosage: 88 UG
     Route: 048
  6. XELJANZ [Suspect]
     Active Substance: TOFACITINIB CITRATE
     Dosage: 5 MG, 2X/DAY
     Route: 048
     Dates: start: 20190220, end: 20190306
  7. APO?PREDNISONE [Concomitant]
     Active Substance: PREDNISONE
     Dosage: 7.5 MG, 1X/DAY
     Route: 048
  8. ZOSTAVAX [Concomitant]
     Active Substance: VARICELLA-ZOSTER VIRUS STRAIN OKA/MERCK LIVE ANTIGEN
     Dosage: UNK
  9. CRESTOR [Concomitant]
     Active Substance: ROSUVASTATIN CALCIUM
     Dosage: 10 MG, 1X/DAY
     Route: 048
  10. XELJANZ [Suspect]
     Active Substance: TOFACITINIB CITRATE
     Indication: RHEUMATOID ARTHRITIS
     Dosage: 5 MG, 1X/DAY
     Route: 048
     Dates: start: 20190114, end: 20190220
  11. TYLENOL [Concomitant]
     Active Substance: ACETAMINOPHEN
     Indication: PAIN MANAGEMENT
     Dosage: UNK
  12. AMLODIPINE [Concomitant]
     Active Substance: AMLODIPINE BESYLATE
     Dosage: 2.5MG (5 TABLETS/DAY)
     Route: 048
  13. AURO?RISEDRONATE [Concomitant]
     Active Substance: RISEDRONATE SODIUM
     Dosage: 35 MG, WEEKLY
     Route: 048
  14. DOVOBET [Concomitant]
     Active Substance: BETAMETHASONE\CALCIPOTRIENE
     Dosage: 50MCG?0.5MG/G (PRN)

REACTIONS (9)
  - Condition aggravated [Unknown]
  - Psoriasis [Unknown]
  - Pain [Recovered/Resolved]
  - Renal cancer [Unknown]
  - Renal disorder [Unknown]
  - Polyp [Unknown]
  - Volvulus [Unknown]
  - Condition aggravated [Recovered/Resolved]
  - Intentional product misuse [Unknown]

NARRATIVE: CASE EVENT DATE: 2019
